FAERS Safety Report 20730225 (Version 2)
Quarter: 2022Q2

REPORT INFORMATION
  Report Type: Spontaneous
  Country: US (occurrence: US)
  Receive Date: 20220420
  Receipt Date: 20220527
  Transmission Date: 20220720
  Serious: No
  Sender: FDA-Public Use
  Company Number: US-PFIZER INC-202200465932

PATIENT
  Age: 13 Year
  Sex: Male

DRUGS (2)
  1. GENOTROPIN [Suspect]
     Active Substance: SOMATROPIN
     Dosage: 1.2 MG (ALTERNATING DOSE)
     Dates: start: 20220305
  2. GENOTROPIN [Suspect]
     Active Substance: SOMATROPIN
     Dosage: 1.4 MG (ALTERNATING DOSE)
     Dates: start: 20220305

REACTIONS (2)
  - Device use issue [Unknown]
  - Device leakage [Unknown]
